FAERS Safety Report 10444129 (Version 1)
Quarter: 2014Q3

REPORT INFORMATION
  Report Type: Spontaneous
  Country: US (occurrence: US)
  Receive Date: 20140910
  Receipt Date: 20140910
  Transmission Date: 20150326
  Serious: Yes (Life-Threatening, Hospitalization, Other)
  Sender: FDA-Public Use
  Company Number: US-GLENMARK GENERICS INC.-2014GMK011041

PATIENT
  Age: 40 Year
  Sex: Male

DRUGS (2)
  1. VERAPAMIL [Suspect]
     Active Substance: VERAPAMIL HYDROCHLORIDE
     Dosage: 14.5 G, UNK
     Route: 048
  2. VERAPAMIL [Suspect]
     Active Substance: VERAPAMIL HYDROCHLORIDE
     Indication: PRODUCT USED FOR UNKNOWN INDICATION
     Dosage: 12 G, UNK

REACTIONS (11)
  - Renal failure [Unknown]
  - Drug level increased [Unknown]
  - Pulmonary embolism [Unknown]
  - Hypotension [Unknown]
  - Abdominal pain [Unknown]
  - Blood glucose increased [Unknown]
  - Embolism arterial [Unknown]
  - Ileus [Unknown]
  - Bradycardia [Unknown]
  - Overdose [Recovering/Resolving]
  - Ischaemia [Unknown]
